FAERS Safety Report 4628156-6 (Version None)
Quarter: 2005Q2

REPORT INFORMATION
  Report Type: 
  Country: None (occurrence: None)
  Receive Date: 20050404
  Receipt Date: 20050321
  Transmission Date: 20051028
  Serious: Yes (Life-Threatening, Other)
  Sender: FDA-Public Use
  Company Number: 2005048314

PATIENT
  Age: 39 Year
  Sex: Female

DRUGS (3)
  1. XANAX [Suspect]
     Indication: ILL-DEFINED DISORDER
     Dosage: ORAL
     Route: 048
  2. ETHANOL (ETHANOL) [Suspect]
     Indication: ILL-DEFINED DISORDER
  3. PAROXETINE HCL [Concomitant]

REACTIONS (5)
  - AGGRESSION [None]
  - AMNESIA [None]
  - AUTOMATISM [None]
  - BLOOD ALCOHOL INCREASED [None]
  - ROAD TRAFFIC ACCIDENT [None]
